FAERS Safety Report 12297506 (Version 1)
Quarter: 2016Q2

REPORT INFORMATION
  Report Type: Spontaneous
  Country: NL (occurrence: NL)
  Receive Date: 20160422
  Receipt Date: 20160422
  Transmission Date: 20160815
  Serious: Yes (Other)
  Sender: FDA-Public Use
  Company Number: NL-TEVA-652832ISR

PATIENT
  Age: 75 Year

DRUGS (6)
  1. BISOPROLOL [Concomitant]
     Active Substance: BISOPROLOL
     Route: 065
  2. BUMETANIDE. [Concomitant]
     Active Substance: BUMETANIDE
     Route: 065
  3. DIGOXINE [Concomitant]
     Active Substance: DIGOXIN
     Route: 065
  4. PERINDOPRIL [Concomitant]
     Active Substance: PERINDOPRIL
     Route: 065
  5. DOXYCYCLINE TABLET 100MG [Suspect]
     Active Substance: DOXYCYCLINE
     Indication: BACTERIAL INFECTION
     Dosage: 200 MILLIGRAM DAILY;
     Route: 048
  6. ACENOCOUMAROLE [Concomitant]
     Route: 065

REACTIONS (3)
  - Dermatitis bullous [Unknown]
  - Dermatitis [Unknown]
  - Blister [Unknown]
